FAERS Safety Report 17304874 (Version 5)
Quarter: 2020Q4

REPORT INFORMATION
  Report Type: Spontaneous
  Country: US (occurrence: US)
  Receive Date: 20200123
  Receipt Date: 20201119
  Transmission Date: 20210113
  Serious: Yes (Other)
  Sender: FDA-Public Use
  Company Number: US-PFIZER INC-2020029436

PATIENT
  Age: 60 Year
  Sex: Female

DRUGS (4)
  1. METHOTREXATE. [Concomitant]
     Active Substance: METHOTREXATE
     Dosage: UNK
  2. XELJANZ [Suspect]
     Active Substance: TOFACITINIB CITRATE
     Dosage: UNK, (RESTARTED FOR 1 WEEK)
     Dates: start: 202003, end: 20200316
  3. XELJANZ [Suspect]
     Active Substance: TOFACITINIB CITRATE
     Indication: RHEUMATOID ARTHRITIS
     Dosage: 5 MG, 2X/DAY
     Route: 048
     Dates: start: 201301, end: 202002
  4. XELJANZ [Suspect]
     Active Substance: TOFACITINIB CITRATE
     Dosage: 5 MG, DAILY (1 TABLET DAILY)
     Route: 048
     Dates: start: 20201002

REACTIONS (20)
  - Cough [Unknown]
  - Sinus congestion [Unknown]
  - Pain in extremity [Unknown]
  - Ear infection [Unknown]
  - Intentional product misuse [Unknown]
  - Hypoaesthesia [Unknown]
  - Arthralgia [Unknown]
  - Fatigue [Not Recovered/Not Resolved]
  - Gait disturbance [Unknown]
  - Hypothyroidism [Unknown]
  - Finger deformity [Unknown]
  - Intentional dose omission [Unknown]
  - Influenza like illness [Unknown]
  - Depression [Unknown]
  - Neuropathy peripheral [Not Recovered/Not Resolved]
  - Paraesthesia [Unknown]
  - Product prescribing error [Unknown]
  - Back pain [Unknown]
  - Condition aggravated [Unknown]
  - Bronchitis [Unknown]

NARRATIVE: CASE EVENT DATE: 201911
